FAERS Safety Report 9009621 (Version 2)
Quarter: 2013Q1

REPORT INFORMATION
  Report Type: Spontaneous
  Country: JP (occurrence: JP)
  Receive Date: 20130110
  Receipt Date: 20130125
  Transmission Date: 20140127
  Serious: Yes (Other)
  Sender: FDA-Public Use
  Company Number: JP-PFIZER INC-2013007706

PATIENT
  Age: 55 Year
  Sex: Male

DRUGS (3)
  1. HALCION [Suspect]
     Indication: INSOMNIA
     Dosage: 0.25 MG, 1X/DAY
     Route: 048
  2. DORAL [Concomitant]
     Indication: INSOMNIA
     Dosage: UNK
     Route: 048
  3. VEGETAMIN B [Concomitant]
     Indication: INSOMNIA
     Dosage: UNK
     Route: 048

REACTIONS (1)
  - Pulmonary tuberculosis [Not Recovered/Not Resolved]
